FAERS Safety Report 6743679-1 (Version None)
Quarter: 2010Q2

REPORT INFORMATION
  Report Type: 
  Country: None (occurrence: None)
  Receive Date: 20100525
  Receipt Date: 20100511
  Transmission Date: 20101027
  Serious: Yes (Death)
  Sender: FDA-Public Use
  Company Number: 009170

PATIENT
  Age: 59 Year
  Sex: Male

DRUGS (8)
  1. BUSULFEX [Suspect]
     Indication: STEM CELL TRANSPLANT
     Dosage: 45 MG, QID, INTRAVENOUS
     Route: 042
     Dates: start: 20080305, end: 20080306
  2. FLUDARABINE PHOSPHATE [Suspect]
     Indication: STEM CELL TRANSPLANT
     Dosage: 30 MG/M2
     Dates: start: 20080303, end: 20080308
  3. METHOTREXATE [Suspect]
     Indication: PROPHYLAXIS
     Dosage: 15 MG, DAILY DOSE: INTRAVENOUS; 10 MG, DAILY DOSE: INTRAVENOUS, 10 MG, DAILY DOSE; INTRAVENOUS
     Route: 042
     Dates: start: 20080312, end: 20080312
  4. METHOTREXATE [Suspect]
     Indication: PROPHYLAXIS
     Dosage: 15 MG, DAILY DOSE: INTRAVENOUS; 10 MG, DAILY DOSE: INTRAVENOUS, 10 MG, DAILY DOSE; INTRAVENOUS
     Route: 042
     Dates: start: 20080314, end: 20080314
  5. METHOTREXATE [Suspect]
     Indication: PROPHYLAXIS
     Dosage: 15 MG, DAILY DOSE: INTRAVENOUS; 10 MG, DAILY DOSE: INTRAVENOUS, 10 MG, DAILY DOSE; INTRAVENOUS
     Route: 042
     Dates: start: 20080318, end: 20080318
  6. TACROLIMUS [Suspect]
     Indication: PROPHYLAXIS
     Dosage: 1.6 MG, DAILY DOSE; INTRAVENOUS
     Route: 042
     Dates: start: 20080310
  7. ETOPOSIDE [Concomitant]
  8. DEPAKENE [Concomitant]

REACTIONS (10)
  - DEPRESSED LEVEL OF CONSCIOUSNESS [None]
  - DIARRHOEA [None]
  - HYPOXIA [None]
  - ILEUS PARALYTIC [None]
  - INTESTINAL OBSTRUCTION [None]
  - MULTI-ORGAN FAILURE [None]
  - PNEUMONIA BACTERIAL [None]
  - PYREXIA [None]
  - SEPSIS [None]
  - STEM CELL TRANSPLANT [None]
